FAERS Safety Report 17139463 (Version 1)
Quarter: 2019Q4

REPORT INFORMATION
  Report Type: Spontaneous
  Country: US (occurrence: US)
  Receive Date: 20191210
  Receipt Date: 20191210
  Transmission Date: 20200122
  Serious: Yes (Disabling, Other)
  Sender: FDA-Public Use
  Company Number: None

PATIENT
  Age: 57 Year
  Sex: Female
  Weight: 57.6 kg

DRUGS (4)
  1. B12 SUPPLEMENTS [Concomitant]
  2. VITAMIN D [Concomitant]
     Active Substance: VITAMIN D NOS
  3. CALCIUM [Concomitant]
     Active Substance: CALCIUM
  4. ALENDRONATE SODIUM TABLETS, USP [Suspect]
     Active Substance: ALENDRONATE SODIUM
     Indication: OSTEOPOROSIS
     Dosage: ?          QUANTITY:1 TABLET(S);OTHER FREQUENCY:ONCE WEEKLY;?
     Route: 048

REACTIONS (13)
  - Asthma [None]
  - Dysphonia [None]
  - Fatigue [None]
  - Gastrooesophageal reflux disease [None]
  - Arrhythmia [None]
  - Sinusitis [None]
  - Pertussis [None]
  - Product complaint [None]
  - Dyspnoea [None]
  - Hypersensitivity [None]
  - Malaise [None]
  - Cough [None]
  - Oesophageal spasm [None]

NARRATIVE: CASE EVENT DATE: 20190501
